FAERS Safety Report 25889019 (Version 1)
Quarter: 2025Q4

REPORT INFORMATION
  Report Type: Spontaneous
  Country: UA (occurrence: UA)
  Receive Date: 20251007
  Receipt Date: 20251007
  Transmission Date: 20260117
  Serious: Yes (Hospitalization)
  Sender: ROCHE
  Company Number: UA-ROCHE-10000400511

PATIENT
  Age: 33 Year
  Sex: Male
  Weight: 55 kg

DRUGS (1)
  1. HEMLIBRA [Suspect]
     Active Substance: EMICIZUMAB-KXWH
     Indication: Factor VIII deficiency
     Route: 058

REACTIONS (8)
  - Asthenia [Unknown]
  - Fatigue [Unknown]
  - Haematochezia [Unknown]
  - Hypoaesthesia [Unknown]
  - Pain in extremity [Unknown]
  - Muscle strain [Unknown]
  - Muscle strain [Unknown]
  - Muscle strain [Unknown]

NARRATIVE: CASE EVENT DATE: 20250501
